FAERS Safety Report 24692884 (Version 1)
Quarter: 2024Q4

REPORT INFORMATION
  Report Type: Spontaneous
  Country: GB (occurrence: GB)
  Receive Date: 20241203
  Receipt Date: 20241203
  Transmission Date: 20250114
  Serious: Yes (Other)
  Sender: MYLAN
  Company Number: GB-MHRA-TPP13012269C26351161YC1732702217470

PATIENT
  Age: 15 Year
  Sex: Female
  Weight: 55 kg

DRUGS (3)
  1. METHYLPHENIDATE [Suspect]
     Active Substance: METHYLPHENIDATE
     Indication: Ill-defined disorder
     Dosage: UNK
     Route: 065
     Dates: start: 20241127
  2. METHYLPHENIDATE [Concomitant]
     Active Substance: METHYLPHENIDATE
     Indication: Ill-defined disorder
     Dosage: 10 MILLIGRAM, AM (10MG OM)
     Route: 065
     Dates: start: 20241106, end: 20241116
  3. LISDEXAMFETAMINE [Concomitant]
     Active Substance: LISDEXAMFETAMINE
     Indication: Ill-defined disorder
     Dosage: 20 MILLIGRAM, AM (20MG OM)
     Route: 065
     Dates: start: 20241122

REACTIONS (2)
  - Depressed mood [Unknown]
  - Mood altered [Unknown]

NARRATIVE: CASE EVENT DATE: 20241127
